FAERS Safety Report 9343719 (Version 2)
Quarter: 2013Q2

REPORT INFORMATION
  Report Type: Report from Study
  Country: AU (occurrence: AU)
  Receive Date: 20130612
  Receipt Date: 20130620
  Transmission Date: 20140414
  Serious: Yes (Death, Hospitalization)
  Sender: FDA-Public Use
  Company Number: PHHY2013AU059543

PATIENT
  Age: 90 Year
  Sex: Male

DRUGS (7)
  1. ACLASTA [Suspect]
     Dosage: 5 MG, UNK
     Route: 042
     Dates: start: 20090501
  2. ACLASTA [Suspect]
     Dosage: 5 MG, UNK
     Route: 042
     Dates: start: 20100527
  3. ACLASTA [Suspect]
     Dosage: 5 MG, UNK
     Route: 042
     Dates: start: 20120529
  4. AVINZA [Concomitant]
     Indication: DEPRESSION
     Dosage: 45 MG, AT NIGHT
     Route: 048
     Dates: start: 20110819
  5. IMIGRAN                                 /NOR/ [Concomitant]
     Indication: HEADACHE
     Dosage: 50 MG, PM
     Route: 048
     Dates: start: 20120410
  6. SEROQUEL [Concomitant]
     Indication: DEPRESSION
     Dosage: UNK UKN, UNK
     Route: 048
     Dates: start: 20110819
  7. TENACE [Concomitant]
     Indication: INSOMNIA
     Dosage: UNK UKN, UNK
     Route: 048
     Dates: start: 20110819

REACTIONS (5)
  - Death [Fatal]
  - General physical health deterioration [Not Recovered/Not Resolved]
  - Decreased appetite [Not Recovered/Not Resolved]
  - Weight decreased [Not Recovered/Not Resolved]
  - Asthenia [Not Recovered/Not Resolved]
